FAERS Safety Report 23357680 (Version 1)
Quarter: 2023Q4

REPORT INFORMATION
  Report Type: Spontaneous
  Country: US (occurrence: None)
  Receive Date: 20231229
  Receipt Date: 20231229
  Transmission Date: 20240110
  Serious: No
  Sender: FDA-Public Use
  Company Number: None

PATIENT

DRUGS (2)
  1. CARBAMAZEPINE [Suspect]
     Active Substance: CARBAMAZEPINE
  2. NAPROXEN [Suspect]
     Active Substance: NAPROXEN

REACTIONS (6)
  - Generalised tonic-clonic seizure [None]
  - Product dispensing error [None]
  - Tongue biting [None]
  - Headache [None]
  - Balance disorder [None]
  - Wrong product administered [None]

NARRATIVE: CASE EVENT DATE: 20230417
